FAERS Safety Report 7307814-9 (Version None)
Quarter: 2011Q1

REPORT INFORMATION
  Report Type: 
  Country: None (occurrence: None)
  Receive Date: 20110223
  Receipt Date: 20110211
  Transmission Date: 20110831
  Serious: Yes (Hospitalization)
  Sender: FDA-Public Use
  Company Number: FR-KINGPHARMUSA00001-K201100153

PATIENT
  Age: 73 Year
  Sex: Male

DRUGS (10)
  1. PLAVIX [Concomitant]
     Dosage: UNK
     Dates: start: 20110111
  2. IPERTEN [Concomitant]
     Dosage: UNK
  3. HYDROCORTISONE [Concomitant]
     Dosage: UNK
  4. TAHOR [Concomitant]
     Dosage: UNK
  5. SELOKEN [Concomitant]
     Dosage: UNK
  6. LEVOTHYROX [Concomitant]
     Dosage: UNK
  7. ALTACE [Suspect]
     Indication: ACUTE CORONARY SYNDROME
     Dosage: 2.5 MG, QD
     Route: 048
     Dates: start: 20110111, end: 20110119
  8. TAMSULOSIN [Concomitant]
     Dosage: UNK
  9. ACETYLCYSTEINE [Concomitant]
     Dosage: UNK
  10. ASPIRIN [Concomitant]
     Dosage: UNK
     Dates: start: 20110111

REACTIONS (4)
  - PULMONARY EMBOLISM [None]
  - CHEST PAIN [None]
  - DYSPNOEA [None]
  - RASH MACULO-PAPULAR [None]
